FAERS Safety Report 13822553 (Version 1)
Quarter: 2017Q3

REPORT INFORMATION
  Report Type: Spontaneous
  Country: DE (occurrence: DE)
  Receive Date: 20170801
  Receipt Date: 20170801
  Transmission Date: 20171127
  Serious: Yes (Other)
  Sender: FDA-Public Use
  Company Number: DE-MYLANLABS-2017M1047239

PATIENT

DRUGS (1)
  1. FONDAPARINUX [Suspect]
     Active Substance: FONDAPARINUX
     Indication: THROMBOPHLEBITIS SUPERFICIAL
     Dosage: 2.5 MG, QD
     Dates: start: 20170530

REACTIONS (2)
  - Oropharyngeal blistering [Unknown]
  - Oral mucosal blistering [Unknown]

NARRATIVE: CASE EVENT DATE: 20170530
